FAERS Safety Report 11639080 (Version 3)
Quarter: 2017Q4

REPORT INFORMATION
  Report Type: Report from Study
  Country: US (occurrence: US)
  Receive Date: 20151019
  Receipt Date: 20171222
  Transmission Date: 20180320
  Serious: Yes (Other)
  Sender: FDA-Public Use
  Company Number: US-AMGEN-USASP2015107868

PATIENT
  Age: 54 Year
  Sex: Female

DRUGS (1)
  1. ENBREL [Suspect]
     Active Substance: ETANERCEPT
     Indication: RHEUMATOID ARTHRITIS
     Dosage: UNK
     Route: 065
     Dates: start: 20150601

REACTIONS (5)
  - Oral herpes [Unknown]
  - Malaise [Unknown]
  - Pyrexia [Unknown]
  - Therapeutic response unexpected [Unknown]
  - Thrombosis [Unknown]

NARRATIVE: CASE EVENT DATE: 201509
